FAERS Safety Report 20985229 (Version 1)
Quarter: 2022Q2

REPORT INFORMATION
  Report Type: Spontaneous
  Country: US (occurrence: None)
  Receive Date: 20220621
  Receipt Date: 20220621
  Transmission Date: 20220721
  Serious: No
  Sender: FDA-Public Use
  Company Number: US-ROCHE-2992004

PATIENT
  Sex: Female

DRUGS (7)
  1. XELODA [Suspect]
     Active Substance: CAPECITABINE
     Indication: Metastases to lung
     Dosage: TAKE 4 TABLETS BY MOUTH TWICE A DAY FOR 2 WEEKS ON AND 1 WEEK OFF
     Route: 048
     Dates: start: 20211116
  2. PEPCID [Concomitant]
     Active Substance: FAMOTIDINE
  3. LIDOCAINE [Concomitant]
     Active Substance: LIDOCAINE
  4. PROCHLORPERAZINE MALEATE [Concomitant]
     Active Substance: PROCHLORPERAZINE MALEATE
  5. TYLENOL [Concomitant]
     Active Substance: ACETAMINOPHEN
  6. VITAMIN B6 [Concomitant]
     Active Substance: PYRIDOXINE HYDROCHLORIDE
  7. ZOFRAN [Concomitant]
     Active Substance: ONDANSETRON HYDROCHLORIDE

REACTIONS (10)
  - Insomnia [Not Recovered/Not Resolved]
  - Off label use [Unknown]
  - Fatigue [Unknown]
  - Visual impairment [Unknown]
  - Arthralgia [Unknown]
  - Asthenia [Unknown]
  - Thyroid disorder [Unknown]
  - Weight increased [Unknown]
  - Pain in extremity [Unknown]
  - Constipation [Unknown]
